FAERS Safety Report 25067907 (Version 1)
Quarter: 2025Q1

REPORT INFORMATION
  Report Type: Spontaneous
  Country: US (occurrence: None)
  Receive Date: 20250311
  Receipt Date: 20250311
  Transmission Date: 20250409
  Serious: Yes (Hospitalization)
  Sender: FDA-CTU
  Company Number: None

PATIENT
  Age: 52 Year
  Sex: Male

DRUGS (11)
  1. MYCOPHENOLIC ACID [Suspect]
     Active Substance: MYCOPHENOLIC ACID
     Dosage: FREQUENCY : TWICE A DAY;?
     Route: 048
     Dates: start: 20241218
  2. TYLENOL [Suspect]
     Active Substance: ACETAMINOPHEN
  3. TACROLIMUS [Concomitant]
     Active Substance: TACROLIMUS
  4. AMLODIPINE BESYLATE [Concomitant]
     Active Substance: AMLODIPINE BESYLATE
  5. ATORVASTATIN [Concomitant]
     Active Substance: ATORVASTATIN
  6. GABAPENTIN [Concomitant]
     Active Substance: GABAPENTIN
  7. LEVOCETIRIZINE [Concomitant]
     Active Substance: LEVOCETIRIZINE
  8. LOSARTAN [Concomitant]
     Active Substance: LOSARTAN
  9. NIFEDIPINE [Concomitant]
     Active Substance: NIFEDIPINE
  10. ONDANSETRON [Concomitant]
     Active Substance: ONDANSETRON
  11. PANTOPRAZOLE [Concomitant]
     Active Substance: PANTOPRAZOLE

REACTIONS (4)
  - Electrolyte imbalance [None]
  - Escherichia infection [None]
  - Blood pressure increased [None]
  - Toxicity to various agents [None]

NARRATIVE: CASE EVENT DATE: 20250219
